FAERS Safety Report 25919970 (Version 1)
Quarter: 2025Q4

REPORT INFORMATION
  Report Type: Spontaneous
  Country: US (occurrence: None)
  Receive Date: 20251009
  Receipt Date: 20251009
  Transmission Date: 20260117
  Serious: Yes (Hospitalization)
  Sender: FDA-CTU
  Company Number: None

PATIENT
  Sex: Male
  Weight: 68.85 kg

DRUGS (1)
  1. WINREVAIR [Suspect]
     Active Substance: SOTATERCEPT-CSRK
     Indication: Pulmonary arterial hypertension
     Dosage: 1 ML EVERY 3 WEEKS SUBCUTANEOUS?
     Route: 058
     Dates: start: 20240905

REACTIONS (3)
  - Diarrhoea [None]
  - Disease complication [None]
  - Cardiac arrest [None]
